FAERS Safety Report 23071290 (Version 11)
Quarter: 2024Q3

REPORT INFORMATION
  Report Type: Spontaneous
  Country: CA (occurrence: CA)
  Receive Date: 20231016
  Receipt Date: 20240827
  Transmission Date: 20241017
  Serious: Yes (Hospitalization, Other)
  Sender: CELLTRION
  Company Number: CA-CELLTRION INC.-2023CA000307

PATIENT

DRUGS (19)
  1. INFLECTRA [Suspect]
     Active Substance: INFLIXIMAB-DYYB
     Indication: Crohn^s disease
     Dosage: 386 MG, AT 0,2,6 WEEKS, THEN EVERY 8 WEEKS
     Route: 042
     Dates: start: 20230103
  2. INFLECTRA [Suspect]
     Active Substance: INFLIXIMAB-DYYB
     Dosage: 386 MG, AT 0,2,6 WEEKS, THEN EVERY 8 WEEKS (ON WEEK 2)
     Route: 042
     Dates: start: 20230117
  3. INFLECTRA [Suspect]
     Active Substance: INFLIXIMAB-DYYB
     Dosage: 386 MG, W 0, 2, 6 AND Q8 WEEKS
     Route: 042
     Dates: start: 20230217
  4. INFLECTRA [Suspect]
     Active Substance: INFLIXIMAB-DYYB
     Dosage: 386 MG, EVERY 8 WEEKS
     Route: 042
     Dates: start: 20230619
  5. INFLECTRA [Suspect]
     Active Substance: INFLIXIMAB-DYYB
     Dosage: 670 MG (10MG/KG), EVERY 8 WEEKS
     Route: 042
     Dates: start: 20230822
  6. INFLECTRA [Suspect]
     Active Substance: INFLIXIMAB-DYYB
     Dosage: 670MG, AFTER 8 WEEKS
     Route: 042
     Dates: start: 20231013
  7. INFLECTRA [Suspect]
     Active Substance: INFLIXIMAB-DYYB
     Dosage: 10 MG/KG, EVERY 8 WEEKS
     Route: 042
     Dates: start: 20231207
  8. INFLECTRA [Suspect]
     Active Substance: INFLIXIMAB-DYYB
     Dosage: 660 MG (10 MG/KG), EVERY 8 WEEKS
     Route: 042
     Dates: start: 20240202
  9. INFLECTRA [Suspect]
     Active Substance: INFLIXIMAB-DYYB
     Dosage: 680 MG (10 MG/KG), AFTER 9 WEEKS AND 4 DAYS (PRESCRIBED EVERY 8 WEEKS)
     Route: 042
     Dates: start: 20240409
  10. CIPROFLOXACIN [Concomitant]
     Active Substance: CIPROFLOXACIN
     Dosage: 1 DF
     Dates: start: 2012
  11. METRONIDAZOLE BENZOATE [Concomitant]
     Active Substance: METRONIDAZOLE BENZOATE
     Dosage: 1 DF
  12. IMURAN [Concomitant]
     Active Substance: AZATHIOPRINE
     Dosage: UNK
  13. IMURAN [Concomitant]
     Active Substance: AZATHIOPRINE
     Dosage: 1 DF, UNKNOWN
     Dates: start: 2012
  14. IMURAN [Concomitant]
     Active Substance: AZATHIOPRINE
     Dosage: 50 MG, 3X/DAY
     Dates: start: 20220610
  15. INVEGA [Concomitant]
     Active Substance: PALIPERIDONE
     Dosage: 1 DF, UNKNOWN
  16. ODEFSEY [Concomitant]
     Active Substance: EMTRICITABINE\RILPIVIRINE HYDROCHLORIDE\TENOFOVIR ALAFENAMIDE FUMARATE
     Dosage: 1 DF, UNKNOWN
  17. PREDNISONE [Concomitant]
     Active Substance: PREDNISONE
     Dosage: UNK
  18. PREDNISONE [Concomitant]
     Active Substance: PREDNISONE
     Dosage: 1 DF, UNKNOWN
     Dates: start: 2012
  19. PREDNISONE [Concomitant]
     Active Substance: PREDNISONE
     Dosage: 5 MG, 8X/DAY
     Dates: start: 20220610

REACTIONS (23)
  - Anal abscess [Unknown]
  - Anal squamous cell carcinoma [Unknown]
  - Suicidal ideation [Unknown]
  - Rectal abscess [Not Recovered/Not Resolved]
  - Drug ineffective [Unknown]
  - Therapeutic product effect incomplete [Unknown]
  - Condition aggravated [Recovering/Resolving]
  - Heart rate increased [Not Recovered/Not Resolved]
  - Headache [Unknown]
  - Nausea [Unknown]
  - Hyperhidrosis [Recovered/Resolved]
  - Anal fissure [Recovered/Resolved]
  - Psychotic disorder [Recovered/Resolved]
  - Hypertension [Unknown]
  - Malaise [Unknown]
  - Arthralgia [Recovered/Resolved]
  - Fistula [Unknown]
  - Discomfort [Unknown]
  - Anal fistula [Not Recovered/Not Resolved]
  - Urinary incontinence [Unknown]
  - Anal incontinence [Unknown]
  - Body temperature increased [Unknown]
  - Inappropriate schedule of product administration [Unknown]

NARRATIVE: CASE EVENT DATE: 20230101
